FAERS Safety Report 23938029 (Version 1)
Quarter: 2024Q2

REPORT INFORMATION
  Report Type: Spontaneous
  Country: GB (occurrence: GB)
  Receive Date: 20240604
  Receipt Date: 20240604
  Transmission Date: 20240716
  Serious: Yes (Hospitalization, Other)
  Sender: FDA-Public Use
  Company Number: GB-MYLANLABS-2024M1044537

PATIENT
  Sex: Male
  Weight: 89 kg

DRUGS (8)
  1. CLOZARIL [Suspect]
     Active Substance: CLOZAPINE
     Indication: Schizophrenia
     Dosage: 20 MILLIGRAM, TID
     Route: 048
     Dates: start: 20240508, end: 20240511
  2. CLOZARIL [Suspect]
     Active Substance: CLOZAPINE
     Dosage: 12.5 MILLIGRAM, AM (ONCE IN THE MORNING)
     Route: 048
     Dates: start: 20240513, end: 20240513
  3. SERTRALINE [Concomitant]
     Active Substance: SERTRALINE HYDROCHLORIDE
     Indication: Depression
     Dosage: 200 MILLIGRAM, AM (ONCE IN THE MORNING)
     Route: 048
     Dates: start: 20231222
  4. EDOXABAN [Concomitant]
     Active Substance: EDOXABAN
     Indication: Prophylaxis
     Dosage: 60 MILLIGRAM, AM (ONCE IN THE MORNING)
     Route: 048
     Dates: start: 20231222
  5. FERROUS SULFATE [Concomitant]
     Active Substance: FERROUS SULFATE
     Indication: Iron deficiency
     Dosage: 200 MILLIGRAM, AM (ONCE IN THE MORNING)
     Route: 048
     Dates: start: 20231227
  6. LANSOPRAZOLE [Concomitant]
     Active Substance: LANSOPRAZOLE
     Indication: Prophylaxis
     Dosage: 15 MILLIGRAM, AM (ONCE IN THE MORNING)
     Route: 048
     Dates: start: 20231228
  7. BISOPROLOL [Concomitant]
     Active Substance: BISOPROLOL\BISOPROLOL FUMARATE
     Indication: Atrial fibrillation
     Dosage: 5 MILLIGRAM, AM (ONCE IN THE MORNING)
     Route: 048
     Dates: start: 20240102
  8. DEPAKOTE [Concomitant]
     Active Substance: DIVALPROEX SODIUM
     Indication: Product used for unknown indication
     Dosage: 1 GRAM, BID (MORNING AND NIGHT)
     Route: 048
     Dates: start: 20240116

REACTIONS (2)
  - Sepsis [Unknown]
  - Thrombocytopenia [Recovered/Resolved]

NARRATIVE: CASE EVENT DATE: 20240511
